FAERS Safety Report 18506470 (Version 2)
Quarter: 2020Q4

REPORT INFORMATION
  Report Type: Spontaneous
  Country: US (occurrence: US)
  Receive Date: 20201116
  Receipt Date: 20201119
  Transmission Date: 20210114
  Serious: Yes (Other)
  Sender: FDA-Public Use
  Company Number: US-PFIZER INC-2020448858

PATIENT
  Age: 30 Year
  Sex: Male
  Weight: 83.91 kg

DRUGS (2)
  1. MOTRIN [Interacting]
     Active Substance: IBUPROFEN
     Indication: ARTHRALGIA
     Dosage: 1200 MG
  2. VIAGRA [Suspect]
     Active Substance: SILDENAFIL CITRATE
     Indication: ERECTILE DYSFUNCTION
     Dosage: 100 MG (LITTLE BLUE PILL)

REACTIONS (4)
  - Dysuria [Unknown]
  - Drug interaction [Unknown]
  - Urinary retention [Unknown]
  - Micturition disorder [Unknown]

NARRATIVE: CASE EVENT DATE: 2020
